FAERS Safety Report 12861076 (Version 1)
Quarter: 2016Q4

REPORT INFORMATION
  Report Type: Spontaneous
  Country: FR (occurrence: FR)
  Receive Date: 20161019
  Receipt Date: 20161019
  Transmission Date: 20170207
  Serious: Yes (Life-Threatening, Other)
  Sender: FDA-Public Use
  Company Number: FR-FRESENIUS KABI-FK201607833

PATIENT
  Age: 6 Year
  Sex: Male

DRUGS (1)
  1. PARACETAMOL (MANUFACTURER UNKNOWN) [Suspect]
     Active Substance: ACETAMINOPHEN
     Indication: GASTROENTERITIS
     Route: 065

REACTIONS (1)
  - Haemolytic anaemia [Recovered/Resolved]
